FAERS Safety Report 9684159 (Version 2)
Quarter: 2014Q2

REPORT INFORMATION
  Report Type: Spontaneous
  Country: BR (occurrence: BR)
  Receive Date: 20131112
  Receipt Date: 20140422
  Transmission Date: 20141212
  Serious: Yes (Hospitalization)
  Sender: FDA-Public Use
  Company Number: PHHY2013BR126792

PATIENT
  Age: 26 Day
  Sex: Male

DRUGS (1)
  1. PARACETAMOL [Suspect]
     Dosage: MATERNAL DOSE: 10MG/KG/DOSE EVERY 4 HOURS
     Route: 063

REACTIONS (20)
  - Acute hepatic failure [Unknown]
  - Metabolic acidosis [Unknown]
  - Irritability [Unknown]
  - Feeding disorder neonatal [Unknown]
  - Vomiting [Unknown]
  - Pyrexia [Unknown]
  - Upper gastrointestinal haemorrhage [Unknown]
  - Jaundice [Recovered/Resolved]
  - Shock [Unknown]
  - Skin discolouration [Unknown]
  - Heart rate increased [Unknown]
  - Blood pressure abnormal [Unknown]
  - Pulse abnormal [Unknown]
  - Hepatomegaly [Unknown]
  - Hypoglycaemia [Unknown]
  - Coagulopathy [Recovering/Resolving]
  - Abdominal distension [Unknown]
  - Respiratory distress [Unknown]
  - Crying [Unknown]
  - Exposure during breast feeding [Unknown]
